FAERS Safety Report 5707666-4 (Version None)
Quarter: 2008Q2

REPORT INFORMATION
  Report Type: 
  Country: None (occurrence: None)
  Receive Date: 20080416
  Receipt Date: 20080408
  Transmission Date: 20081010
  Serious: Yes (Other)
  Sender: FDA-Public Use
  Company Number: US-PFIZER INC-2008031073

PATIENT
  Sex: Female

DRUGS (4)
  1. PROVERA [Suspect]
     Indication: HORMONE REPLACEMENT THERAPY
     Route: 048
     Dates: start: 19990101, end: 20020701
  2. MEDROXYPROGESTERONE ACETATE [Suspect]
     Indication: HORMONE REPLACEMENT THERAPY
     Route: 048
     Dates: start: 19990101, end: 20020701
  3. PREMPRO [Suspect]
     Indication: HORMONE REPLACEMENT THERAPY
     Route: 048
     Dates: start: 19990101, end: 20020701
  4. PREMARIN [Suspect]
     Indication: HORMONE REPLACEMENT THERAPY
     Route: 048
     Dates: start: 19990101, end: 20020701

REACTIONS (1)
  - BREAST CANCER FEMALE [None]
